FAERS Safety Report 19190952 (Version 1)
Quarter: 2021Q2

REPORT INFORMATION
  Report Type: Spontaneous
  Country: US (occurrence: US)
  Receive Date: 20210428
  Receipt Date: 20210428
  Transmission Date: 20210717
  Serious: Yes (Hospitalization)
  Sender: FDA-Public Use
  Company Number: US-AMERICAN REGENT INC-2021001018

PATIENT
  Age: 52 Year
  Sex: Female

DRUGS (4)
  1. OXALIPLATIN INJECTION, USP (0517?1910?01) [Suspect]
     Active Substance: OXALIPLATIN
     Indication: COLON CANCER METASTATIC
     Dosage: 130 MG/M2 ON DAY 1, EVERY 21 DAYS
     Route: 042
     Dates: start: 2019, end: 2019
  2. OXALIPLATIN INJECTION, USP (0517?1910?01) [Suspect]
     Active Substance: OXALIPLATIN
     Dosage: 85 MG/M2 EVERY 14 DAYS; INFUSION TIME OF 4 HOURS
     Route: 042
     Dates: start: 2019
  3. OXALIPLATIN INJECTION, USP (0517?1910?01) [Suspect]
     Active Substance: OXALIPLATIN
     Dosage: 130 MG/M2 ON DAY 1, EVERY 21 DAYS
     Route: 042
     Dates: start: 2019, end: 2019
  4. CAPECITABINE. [Concomitant]
     Active Substance: CAPECITABINE
     Indication: COLON CANCER METASTATIC
     Dosage: 1000 MG/M2, BID ON DAYS 1?14, EVERY 21 DAYS
     Route: 048
     Dates: start: 2019

REACTIONS (10)
  - Vision blurred [Recovered/Resolved]
  - Dysarthria [Recovered/Resolved]
  - Paraesthesia [Recovered/Resolved]
  - Slow speech [Recovered/Resolved]
  - Product use issue [Unknown]
  - Motor dysfunction [Recovered/Resolved]
  - Temperature intolerance [Unknown]
  - Tremor [Recovered/Resolved]
  - Muscle spasms [Recovered/Resolved]
  - Cold dysaesthesia [Unknown]

NARRATIVE: CASE EVENT DATE: 2019
